FAERS Safety Report 9054012 (Version 1)
Quarter: 2013Q1

REPORT INFORMATION
  Report Type: Spontaneous
  Country: US (occurrence: None)
  Receive Date: 20130201
  Receipt Date: 20130201
  Transmission Date: 20140127
  Serious: No
  Sender: FDA-Public Use
  Company Number: None

PATIENT
  Age: 50 Year
  Sex: Male
  Weight: 90.9 kg

DRUGS (1)
  1. VALACICLOVIR [Suspect]
     Indication: HERPES ZOSTER
     Dates: start: 20101209, end: 20101211

REACTIONS (2)
  - Product substitution issue [None]
  - Pain [None]
